FAERS Safety Report 15142963 (Version 1)
Quarter: 2018Q3

REPORT INFORMATION
  Report Type: Spontaneous
  Country: US (occurrence: US)
  Receive Date: 20180713
  Receipt Date: 20180713
  Transmission Date: 20181010
  Serious: No
  Sender: FDA-Public Use
  Company Number: US-ASTELLAS-2018US003059

PATIENT
  Age: 70 Year
  Sex: Female

DRUGS (1)
  1. MYRBETRIQ [Suspect]
     Active Substance: MIRABEGRON
     Indication: INCONTINENCE
     Route: 048

REACTIONS (4)
  - Cough [Recovered/Resolved]
  - Sinusitis [Recovered/Resolved]
  - Ear pain [Not Recovered/Not Resolved]
  - Nasopharyngitis [Recovered/Resolved]

NARRATIVE: CASE EVENT DATE: 20180113
